FAERS Safety Report 5590637-9 (Version None)
Quarter: 2008Q1

REPORT INFORMATION
  Report Type: 
  Country: None (occurrence: None)
  Receive Date: 20080114
  Receipt Date: 20080110
  Transmission Date: 20080703
  Serious: Yes (Hospitalization)
  Sender: FDA-Public Use
  Company Number: FR-MERCK-0801FRA00038

PATIENT
  Age: 41 Year
  Sex: Male

DRUGS (2)
  1. STROMECTOL [Suspect]
     Indication: ACARODERMATITIS
     Route: 048
     Dates: start: 20071017, end: 20071017
  2. STROMECTOL [Suspect]
     Route: 048
     Dates: start: 20071024, end: 20071024

REACTIONS (5)
  - CONJUNCTIVITIS [None]
  - DIARRHOEA [None]
  - INFLUENZA [None]
  - MYALGIA [None]
  - RASH MACULO-PAPULAR [None]
